FAERS Safety Report 11907978 (Version 1)
Quarter: 2016Q1

REPORT INFORMATION
  Report Type: Spontaneous
  Country: US (occurrence: US)
  Receive Date: 20160111
  Receipt Date: 20160111
  Transmission Date: 20160526
  Serious: Yes (Death)
  Sender: FDA-Public Use
  Company Number: US-CORDEN PHARMA LATINA S.P.A.-US-2015COR000438

PATIENT

DRUGS (7)
  1. FUROSEMIDE. [Concomitant]
     Active Substance: FUROSEMIDE
     Indication: PROPHYLAXIS
     Dosage: 20 MG, 2 MINTUES BEFORE CISPLATIN
     Route: 042
  2. ETOPOSIDE. [Suspect]
     Active Substance: ETOPOSIDE
     Indication: LYMPHOMA
     Dosage: 800 MG/M2, DAILY FROM DAYS -6 TO -4
     Route: 042
  3. PREDNISONE. [Concomitant]
     Active Substance: PREDNISONE
     Indication: PROPHYLAXIS
     Dosage: 2 MG/KG, DAILY FROM DAYS +7 THROUGH +14
     Route: 048
  4. DEXTROSE. [Concomitant]
     Active Substance: DEXTROSE
     Indication: PROPHYLAXIS
     Dosage: 100 ML, AFTER EACH DOSE OF CISPLATIN
     Route: 042
  5. CISPLATIN. [Suspect]
     Active Substance: CISPLATIN
     Indication: LYMPHOMA
     Dosage: 40 MG/M2, DAILY FROM DAYS -7 TO -3
     Route: 042
  6. MANNITOL. [Concomitant]
     Active Substance: MANNITOL
     Indication: PROPHYLAXIS
     Dosage: 25 G, IN 100 ML DEXTROSE 5% AFTER EACH DOSE OF CISPLATIN
     Route: 042
  7. CARMUSTINE [Suspect]
     Active Substance: CARMUSTINE
     Indication: LYMPHOMA
     Dosage: 200 MG/M2, DAILY FROM DAYS -6 TO -4
     Route: 042

REACTIONS (1)
  - Sepsis [Fatal]
